FAERS Safety Report 4485087-2 (Version None)
Quarter: 2004Q4

REPORT INFORMATION
  Report Type: 
  Country: None (occurrence: None)
  Receive Date: 20041021
  Receipt Date: 20041018
  Transmission Date: 20050328
  Serious: Yes (Death)
  Sender: FDA-Public Use
  Company Number: KII-2003-0006661

PATIENT
  Age: 78 Year
  Sex: Female

DRUGS (3)
  1. OXYCONTIN [Suspect]
     Dosage: 240 MG, BID
  2. OXYFAST CONCENTRATE 20 MG/ML(OXYCODONE HYDROCHLORIDE) ORAL SOLUTION [Suspect]
     Dosage: 6 ML, Q2- 4H
  3. MORPHINE SULFATE [Suspect]
     Dosage: 26 MG , Q1H, INTRAVENOUS
     Route: 042

REACTIONS (2)
  - LYMPHOMA [None]
  - METASTATIC NEOPLASM [None]
